FAERS Safety Report 7212997-5 (Version None)
Quarter: 2011Q1

REPORT INFORMATION
  Report Type: 
  Country: None (occurrence: None)
  Receive Date: 20110106
  Receipt Date: 20101220
  Transmission Date: 20110831
  Serious: Yes (Hospitalization, Congenital Anomaly)
  Sender: FDA-Public Use
  Company Number: A0903001A

PATIENT
  Sex: Male

DRUGS (3)
  1. IRON [Concomitant]
  2. PAXIL [Suspect]
     Dosage: 10MG PER DAY
  3. PRENATAL VITAMINS [Concomitant]

REACTIONS (5)
  - AORTIC VALVE INCOMPETENCE [None]
  - DRUG EXPOSURE DURING PREGNANCY [None]
  - TRANSPOSITION OF THE GREAT VESSELS [None]
  - PULMONARY VALVE STENOSIS [None]
  - ATRIAL SEPTAL DEFECT [None]
